FAERS Safety Report 11360725 (Version 1)
Quarter: 2015Q3

REPORT INFORMATION
  Report Type: Spontaneous
  Country: ES (occurrence: ES)
  Receive Date: 20150810
  Receipt Date: 20150810
  Transmission Date: 20151125
  Serious: Yes (Hospitalization)
  Sender: FDA-Public Use
  Company Number: ES-WATSON-2015-16540

PATIENT
  Age: 69 Year
  Sex: Male

DRUGS (1)
  1. RAPAFLO [Suspect]
     Active Substance: SILODOSIN
     Indication: BENIGN PROSTATIC HYPERPLASIA
     Dosage: 8 MG, DAILY
     Route: 048
     Dates: start: 201407, end: 201507

REACTIONS (2)
  - Acute coronary syndrome [Recovered/Resolved]
  - Acute myocardial infarction [None]

NARRATIVE: CASE EVENT DATE: 20150707
